FAERS Safety Report 7737595-6 (Version None)
Quarter: 2011Q3

REPORT INFORMATION
  Report Type: 
  Country: None (occurrence: None)
  Receive Date: 20110908
  Receipt Date: 20110830
  Transmission Date: 20111222
  Serious: Yes (Other)
  Sender: FDA-Public Use
  Company Number: CN-MERCK-1109USA00165

PATIENT
  Age: 35 Year
  Sex: Male

DRUGS (1)
  1. DECADRON [Suspect]
     Route: 048

REACTIONS (1)
  - MENINGITIS CRYPTOCOCCAL [None]
